FAERS Safety Report 25644185 (Version 1)
Quarter: 2025Q3

REPORT INFORMATION
  Report Type: Report from Study
  Country: US (occurrence: US)
  Receive Date: 20250805
  Receipt Date: 20250805
  Transmission Date: 20251020
  Serious: Yes (Hospitalization)
  Sender: EISAI
  Company Number: US-Eisai-EC-2025-194211

PATIENT
  Age: 61 Year
  Sex: Male
  Weight: 91 kg

DRUGS (26)
  1. LENVIMA [Suspect]
     Active Substance: LENVATINIB
     Indication: Renal cancer
  2. LENVIMA [Suspect]
     Active Substance: LENVATINIB
     Dates: end: 20250122
  3. LENVIMA [Suspect]
     Active Substance: LENVATINIB
     Dates: start: 2025, end: 20250720
  4. LENVIMA [Suspect]
     Active Substance: LENVATINIB
     Dates: start: 20250725
  5. LASIX [Concomitant]
     Active Substance: FUROSEMIDE
  6. ALBUTEROL SULFATE [Concomitant]
     Active Substance: ALBUTEROL SULFATE
  7. AMLODIPINE [Concomitant]
     Active Substance: AMLODIPINE BESYLATE
  8. ATORVASTATIN [Concomitant]
     Active Substance: ATORVASTATIN
  9. AUGMENTIN [Concomitant]
     Active Substance: AMOXICILLIN\CLAVULANATE POTASSIUM
  10. DEXAMETHASONE [Concomitant]
     Active Substance: DEXAMETHASONE
  11. HUMALOG [Concomitant]
     Active Substance: INSULIN LISPRO
  12. NORCO [Concomitant]
     Active Substance: ACETAMINOPHEN\HYDROCODONE BITARTRATE
  13. LEVOTHYROXINE [Concomitant]
     Active Substance: LEVOTHYROXINE
  14. PANTOPRAZOLE [Concomitant]
     Active Substance: PANTOPRAZOLE
  15. POSACONAZOLE [Concomitant]
     Active Substance: POSACONAZOLE
  16. MINERALS\VITAMINS [Concomitant]
     Active Substance: MINERALS\VITAMINS
  17. MINERALS\VITAMINS [Concomitant]
     Active Substance: MINERALS\VITAMINS
  18. TRADJENTA [Concomitant]
     Active Substance: LINAGLIPTIN
  19. TYLENOL [Concomitant]
     Active Substance: ACETAMINOPHEN
  20. VITAMIN D3 [Concomitant]
     Active Substance: CHOLECALCIFEROL
  21. DICLOFENAC [Concomitant]
     Active Substance: DICLOFENAC
  22. LIDOCAINE [Concomitant]
     Active Substance: LIDOCAINE
  23. HYDROCODONE [Concomitant]
     Active Substance: HYDROCODONE
  24. BENAZEPRIL [Concomitant]
     Active Substance: BENAZEPRIL HYDROCHLORIDE
  25. COREG [Concomitant]
     Active Substance: CARVEDILOL
  26. HYDRALAZINE [Concomitant]
     Active Substance: HYDRALAZINE HYDROCHLORIDE

REACTIONS (3)
  - Hypertension [Recovering/Resolving]
  - Tachycardia [Recovering/Resolving]
  - Cerebral haemorrhage [Recovering/Resolving]

NARRATIVE: CASE EVENT DATE: 20250601
